FAERS Safety Report 8548750-X (Version None)
Quarter: 2012Q3

REPORT INFORMATION
  Report Type: 
  Country: None (occurrence: None)
  Receive Date: 20120720
  Receipt Date: 20120720
  Transmission Date: 20120928
  Serious: Yes (Hospitalization)
  Sender: FDA-Public Use
  Company Number: None

PATIENT
  Age: 2 Year
  Sex: Male
  Weight: 18 kg

DRUGS (1)
  1. AZITHROMYCIN [Suspect]
     Dosage: PO
     Route: 048

REACTIONS (2)
  - KAWASAKI'S DISEASE [None]
  - VOMITING [None]
